FAERS Safety Report 17800098 (Version 2)
Quarter: 2020Q2

REPORT INFORMATION
  Report Type: Spontaneous
  Country: GB (occurrence: GB)
  Receive Date: 20200518
  Receipt Date: 20200626
  Transmission Date: 20200714
  Serious: Yes (Other)
  Sender: FDA-Public Use
  Company Number: GB-PERRIGO-20GB006991

PATIENT

DRUGS (1)
  1. PERMETHRIN. [Suspect]
     Active Substance: PERMETHRIN
     Indication: ACARODERMATITIS
     Dosage: 5%
     Route: 065

REACTIONS (15)
  - Application site scab [Unknown]
  - Skin discolouration [Unknown]
  - Irritability [Unknown]
  - Sticky skin [Unknown]
  - Feeling abnormal [Unknown]
  - Burning sensation [Unknown]
  - Feeling hot [Unknown]
  - Dry skin [Unknown]
  - Musculoskeletal stiffness [Unknown]
  - Haemorrhage [Unknown]
  - Wrong technique in product usage process [Unknown]
  - Product residue present [Unknown]
  - Pain [Unknown]
  - Skin lesion [Unknown]
  - Anxiety [Unknown]
